FAERS Safety Report 20138411 (Version 1)
Quarter: 2021Q4

REPORT INFORMATION
  Report Type: Other
  Country: US (occurrence: None)
  Receive Date: 20211202
  Receipt Date: 20211202
  Transmission Date: 20220303
  Serious: Yes (Hospitalization)
  Sender: FDA-Public Use
  Company Number: US-ROCHE-2964722

PATIENT
  Sex: Female

DRUGS (1)
  1. HEMLIBRA [Suspect]
     Active Substance: EMICIZUMAB-KXWH
     Indication: Haemophilia
     Dosage: INJECT 2ML (300MG) SUBCUTANEOUSLY EVERY WEEK FOR 4 WEEKS?FORM OF ADMIN. TEXT: SUPPLY KIT?USE AS DIRE
     Route: 058

REACTIONS (1)
  - Illness [Unknown]
